FAERS Safety Report 10790911 (Version 1)
Quarter: 2015Q1

REPORT INFORMATION
  Report Type: Report from Study
  Country: MX (occurrence: MX)
  Receive Date: 20150212
  Receipt Date: 20150212
  Transmission Date: 20150721
  Serious: Yes (Death, Other)
  Sender: FDA-Public Use
  Company Number: PHHY2015MX017001

PATIENT
  Sex: Female

DRUGS (5)
  1. EXELON PATCH [Suspect]
     Active Substance: RIVASTIGMINE
     Indication: BRAIN HYPOXIA
     Dosage: 0.25 DF (13.3 MG), QD
     Route: 062
  2. TEBONIN [Concomitant]
     Active Substance: GINKGO
     Indication: PRODUCT USED FOR UNKNOWN INDICATION
     Route: 065
  3. ARCALION                                /INO/ [Concomitant]
     Indication: PRODUCT USED FOR UNKNOWN INDICATION
     Route: 065
  4. BENERVA [Concomitant]
     Active Substance: THIAMINE
     Indication: PRODUCT USED FOR UNKNOWN INDICATION
     Route: 065
  5. LIMBIK [Concomitant]
     Indication: PRODUCT USED FOR UNKNOWN INDICATION
     Route: 065

REACTIONS (9)
  - Brain hypoxia [Unknown]
  - Mental disorder [Unknown]
  - Product use issue [Unknown]
  - Influenza [Unknown]
  - Cerebral disorder [Unknown]
  - Regressive behaviour [Unknown]
  - Respiratory failure [Fatal]
  - Disorientation [Unknown]
  - Wrong technique in drug usage process [Unknown]
